FAERS Safety Report 11457013 (Version 2)
Quarter: 2016Q4

REPORT INFORMATION
  Report Type: Spontaneous
  Country: CH (occurrence: CH)
  Receive Date: 20150904
  Receipt Date: 20161028
  Transmission Date: 20170206
  Serious: Yes (Life-Threatening, Hospitalization, Other)
  Sender: FDA-Public Use
  Company Number: CH-009507513-1509CHE000589

PATIENT
  Age: 66 Year
  Sex: Male

DRUGS (1)
  1. SIMVASTATIN. [Suspect]
     Active Substance: SIMVASTATIN
     Dosage: 40MG /D
     Route: 048

REACTIONS (5)
  - Immune-mediated necrotising myopathy [Unknown]
  - Dyskinesia [Unknown]
  - Acute kidney injury [Unknown]
  - Quadriplegia [Unknown]
  - Rhabdomyolysis [Unknown]
